FAERS Safety Report 8766657 (Version 1)
Quarter: 2012Q4

REPORT INFORMATION
  Report Type: 
  Country: US (occurrence: US)
  Receive Date: 20120904
  Receipt Date: 20120904
  Transmission Date: 20130627
  Serious: Yes (Hospitalization, Other)
  Sender: FDA-Public Use
  Company Number: US-AMGEN-USASP2012049759

PATIENT
  Age: 77 Year
  Sex: Female
  Weight: 68.03 kg

DRUGS (2)
  1. PROLIA [Suspect]
     Indication: PRODUCT USED FOR UNKNOWN INDICATION
     Dosage: 60 mg, one time dose
     Route: 058
     Dates: start: 20120801, end: 20120801
  2. LEVOTHYROXINE [Concomitant]
     Indication: HYPOTHYROIDISM
     Dosage: 88 mug, qd
     Route: 048

REACTIONS (11)
  - Pruritus generalised [Recovered/Resolved]
  - Throat tightness [Unknown]
  - Drug hypersensitivity [Unknown]
  - Injection site reaction [Unknown]
  - Injection site erythema [Recovering/Resolving]
  - Injection site pruritus [Unknown]
  - Pruritus [Unknown]
  - Headache [Recovering/Resolving]
  - Dyspnoea [Recovering/Resolving]
  - Cough [Recovering/Resolving]
  - Erythema [Unknown]
